FAERS Safety Report 9961689 (Version 1)
Quarter: 2014Q1

REPORT INFORMATION
  Report Type: Report from Study
  Country: US (occurrence: US)
  Receive Date: 20140305
  Receipt Date: 20140305
  Transmission Date: 20141002
  Serious: No
  Sender: FDA-Public Use
  Company Number: US-ABBVIE-13P-163-1112816-00

PATIENT
  Age: 50 Year
  Sex: Female
  Weight: 54.93 kg

DRUGS (4)
  1. HUMIRA [Suspect]
     Indication: RHEUMATOID ARTHRITIS
     Dates: start: 2003, end: 201303
  2. ASACOL [Concomitant]
     Indication: COLITIS ULCERATIVE
  3. NAPROSYN [Concomitant]
     Indication: PAIN
  4. METHOTREXATE [Concomitant]
     Indication: RHEUMATOID ARTHRITIS

REACTIONS (2)
  - Drug ineffective [Not Recovered/Not Resolved]
  - Arthralgia [Recovering/Resolving]
